FAERS Safety Report 8456727-8 (Version None)
Quarter: 2012Q2

REPORT INFORMATION
  Report Type: 
  Country: None (occurrence: None)
  Receive Date: 20120323
  Receipt Date: 20110902
  Transmission Date: 20120825
  Serious: Yes (Hospitalization)
  Sender: FDA-Public Use
  Company Number: 163-21880-11090504

PATIENT
  Age: 82 Year
  Sex: Female

DRUGS (7)
  1. LORAZEPAM [Concomitant]
  2. LIPITOR [Concomitant]
  3. NIFEDICAL XL (NIFEDIPINE) [Concomitant]
  4. ATENOLOL [Concomitant]
  5. PANTOPRAZOLE SODIUM (PANTOPRAXOLE SODIUM) [Concomitant]
  6. DEXAMETHASONE (DEXAMETHASONE) [Concomitant]
  7. REVLIMID [Suspect]
     Indication: MULTIPLE MYELOMA
     Dosage: 25 MG, DAILY X 21 DAYS, PO
     Route: 048
     Dates: start: 20110818

REACTIONS (1)
  - PNEUMONIA [None]
